FAERS Safety Report 16019394 (Version 1)
Quarter: 2019Q1

REPORT INFORMATION
  Report Type: Spontaneous
  Country: US (occurrence: US)
  Receive Date: 20190228
  Receipt Date: 20190228
  Transmission Date: 20190418
  Serious: No
  Sender: FDA-Public Use
  Company Number: US-TEVA-2019-US-1008309

PATIENT
  Age: 73 Year
  Sex: Male

DRUGS (22)
  1. NEURONTIN [Concomitant]
     Active Substance: GABAPENTIN
     Dosage: 4800 MILLIGRAM DAILY;
  2. LYRICA [Concomitant]
     Active Substance: PREGABALIN
  3. TAMSULOSIN [Concomitant]
     Active Substance: TAMSULOSIN
  4. OMEPRAZOLE. [Concomitant]
     Active Substance: OMEPRAZOLE
     Dosage: 40 MILLIGRAM DAILY; HAS CUT DOWN FROM TAKING TWO PILLS A DAY TO ONE PILL A DAY.
  5. MELATONIN [Concomitant]
     Active Substance: MELATONIN
  6. MORPHINE SULFATE. [Concomitant]
     Active Substance: MORPHINE SULFATE
     Indication: PAIN
     Dosage: 30 MILLIGRAM DAILY;
  7. OMEGA 3 [Concomitant]
     Active Substance: OMEGA-3 FATTY ACIDS
  8. METFORMIN [Concomitant]
     Active Substance: METFORMIN HYDROCHLORIDE
     Dosage: WAS TAKING TWO DIFFERENT STRENGTHS OF THIS, NOW ONLY TAKES ONE.
  9. ELIQUIS [Concomitant]
     Active Substance: APIXABAN
     Indication: BLOOD DISORDER
  10. TRAZODONE [Concomitant]
     Active Substance: TRAZODONE HYDROCHLORIDE
  11. NORCO [Concomitant]
     Active Substance: ACETAMINOPHEN\HYDROCODONE BITARTRATE
     Indication: PAIN
     Dosage: WAS TAKING FOUR A DAY BUT HAS GOTTEN DOWN TO ONE A DAY
  12. DEPO-TESTOSTERONE [Suspect]
     Active Substance: TESTOSTERONE CYPIONATE
     Indication: BLOOD TESTOSTERONE ABNORMAL
     Dates: start: 201708
  13. NORCO [Concomitant]
     Active Substance: ACETAMINOPHEN\HYDROCODONE BITARTRATE
     Dosage: WAS TAKING FOUR A DAY BUT HAS GOTTEN DOWN TO ONE A DAY
  14. ONGLYZA [Concomitant]
     Active Substance: SAXAGLIPTIN HYDROCHLORIDE
     Indication: DIABETES MELLITUS
  15. CARAFATE [Concomitant]
     Active Substance: SUCRALFATE
     Indication: BARRETT^S OESOPHAGUS
  16. FUROSEMIDE. [Concomitant]
     Active Substance: FUROSEMIDE
  17. AMITIZA [Concomitant]
     Active Substance: LUBIPROSTONE
  18. VITAMIN D3 [Concomitant]
     Active Substance: CHOLECALCIFEROL
  19. NIACIN. [Suspect]
     Active Substance: NIACIN
     Indication: BLOOD CHOLESTEROL
     Dosage: 1000 MILLIGRAM DAILY;
     Route: 065
     Dates: end: 20180826
  20. DIAZEPAM. [Concomitant]
     Active Substance: DIAZEPAM
  21. OMEPRAZOLE. [Concomitant]
     Active Substance: OMEPRAZOLE
     Indication: BARRETT^S OESOPHAGUS
     Dosage: 80 MILLIGRAM DAILY; HAS CUT DOWN FROM TAKING TWO PILLS A DAY TO ONE PILL A DAY.
  22. VITAMIN B1 COMPLEX [Concomitant]

REACTIONS (1)
  - Feeling abnormal [Unknown]
